FAERS Safety Report 9123352 (Version 1)
Quarter: 2013Q1

REPORT INFORMATION
  Report Type: Spontaneous
  Country: US (occurrence: US)
  Receive Date: 20130227
  Receipt Date: 20130227
  Transmission Date: 20140127
  Serious: Yes (Disabling)
  Sender: FDA-Public Use
  Company Number: PHEH2013US004689

PATIENT
  Sex: Female
  Weight: 53.52 kg

DRUGS (6)
  1. EXELON PATCH [Suspect]
     Indication: DEMENTIA
     Dosage: 13.3 MG, QD
     Route: 062
     Dates: start: 20130118, end: 20130129
  2. NAMENDA [Concomitant]
     Dosage: UNK UKN, UNK
  3. WELLBUTRIN [Concomitant]
     Dosage: UNK UKN, UNK
  4. GENTAMICIN [Concomitant]
     Dosage: UNK UKN, UNK
  5. CLONIDINE [Concomitant]
     Dosage: UNK UKN, UNK
  6. TRAZODONE [Concomitant]
     Dosage: UNK UKN, UNK

REACTIONS (7)
  - Lethargy [Recovered/Resolved]
  - Incoherent [Recovered/Resolved]
  - Chills [Recovered/Resolved]
  - Feeling cold [Recovered/Resolved]
  - Diet refusal [Recovered/Resolved]
  - Somnolence [Recovered/Resolved]
  - Blood pressure increased [Recovered/Resolved]
